FAERS Safety Report 7041808-6 (Version None)
Quarter: 2010Q4

REPORT INFORMATION
  Report Type: 
  Country: None (occurrence: None)
  Receive Date: 20101013
  Receipt Date: 20100929
  Transmission Date: 20110411
  Serious: Yes (Hospitalization)
  Sender: FDA-Public Use
  Company Number: DE-ROCHE-732550

PATIENT
  Sex: Female
  Weight: 66 kg

DRUGS (6)
  1. MIRCERA [Suspect]
     Route: 058
     Dates: start: 20100921, end: 20100924
  2. TORASEMID [Concomitant]
     Dosage: LONG-TERM TREATMENT
     Route: 048
  3. RAMIPRIL [Concomitant]
     Dosage: LONG-TERM TREATMENT
     Route: 048
  4. BISOPROLOL [Concomitant]
     Indication: HYPERTENSION
     Dosage: LONG-TERM THERAPY
     Route: 048
  5. VALDOXAN [Concomitant]
     Indication: DEPRESSION
     Route: 048
     Dates: start: 20100913
  6. MARCUMAR [Concomitant]
     Indication: ATRIAL FIBRILLATION
     Route: 048
     Dates: start: 20100921

REACTIONS (3)
  - DYSPNOEA [None]
  - HYPERTENSIVE CRISIS [None]
  - OVERDOSE [None]
